FAERS Safety Report 8663017 (Version 4)
Quarter: 2012Q4

REPORT INFORMATION
  Report Type: 
  Country: US (occurrence: US)
  Receive Date: 20120712
  Receipt Date: 20121011
  Transmission Date: 20130627
  Serious: Yes (Hospitalization)
  Sender: FDA-Public Use
  Company Number: US-BAYER-2012-067463

PATIENT
  Age: 46 Year
  Sex: Female
  Weight: 93.4 kg

DRUGS (14)
  1. YASMIN [Suspect]
     Dosage: UNK
     Dates: start: 200403, end: 201009
  2. YASMIN [Suspect]
     Dosage: UNK
  3. OCELLA [Suspect]
     Dosage: UNK
     Dates: start: 200403, end: 201009
  4. SENOKOT-S [DOCUSATE SODIUM,SENNA ALEXANDRINA] [Concomitant]
     Dosage: 2 tablets daily
     Dates: start: 20100805
  5. BISACODYL [Concomitant]
     Dosage: UNK
     Dates: start: 20100805
  6. NEXIUM [Concomitant]
     Dosage: 40 mg daily
     Dates: start: 20100805
  7. KEPPRA [Concomitant]
     Dosage: 500 mg, BID
     Route: 048
     Dates: start: 20100805
  8. DECADRON [DEXAMETHASONE] [Concomitant]
     Dosage: 6 milligrams, every 6 hours
     Route: 048
     Dates: start: 20100809
  9. DECADRON [DEXAMETHASONE] [Concomitant]
     Dosage: 4 mg, UNK
  10. DECADRON [DEXAMETHASONE] [Concomitant]
     Dosage: 2 mg, UNK
  11. DECADRON [DEXAMETHASONE] [Concomitant]
     Dosage: 1 mg, UNK
  12. DECADRON [DEXAMETHASONE] [Concomitant]
     Dosage: 0.5 mg, UNK
  13. REGULAR INSULIN [Concomitant]
     Dosage: Sliding scale coverage
     Dates: start: 20100809
  14. MACROBID [Concomitant]
     Dosage: UNK
     Dates: start: 201010, end: 20101010

REACTIONS (5)
  - Deep vein thrombosis [None]
  - Pulmonary embolism [None]
  - Cerebrovascular accident [None]
  - Cerebral haemorrhage [None]
  - Brain neoplasm [None]
